FAERS Safety Report 4649220-1 (Version None)
Quarter: 2005Q2

REPORT INFORMATION
  Report Type: 
  Country: None (occurrence: None)
  Receive Date: 20050429
  Receipt Date: 20050418
  Transmission Date: 20051028
  Serious: Yes (Other)
  Sender: FDA-Public Use
  Company Number: US-BRISTOL-MYERS SQUIBB COMPANY-12937462

PATIENT
  Age: 31 Week
  Sex: Male

DRUGS (2)
  1. CYCLOPHOSPHAMIDE [Suspect]
     Route: 015
  2. DOXORUBICIN HCL [Suspect]
     Route: 015

REACTIONS (8)
  - ANAEMIA [None]
  - DRUG EXPOSURE DURING PREGNANCY [None]
  - HYPERBILIRUBINAEMIA [None]
  - HYPOGLYCAEMIA [None]
  - NEONATAL RESPIRATORY DISTRESS SYNDROME [None]
  - NEUTROPENIA [None]
  - PREMATURE BABY [None]
  - RESPIRATORY FAILURE [None]
